FAERS Safety Report 7902113-6 (Version None)
Quarter: 2011Q4

REPORT INFORMATION
  Report Type: 
  Country: None (occurrence: None)
  Receive Date: 20111108
  Receipt Date: 20111031
  Transmission Date: 20120403
  Serious: Yes (Other)
  Sender: FDA-Public Use
  Company Number: US-BAYER-2011-033091

PATIENT
  Age: 21 Year
  Sex: Female

DRUGS (2)
  1. MIRENA [Suspect]
     Dosage: UNK
     Dates: start: 20090901, end: 20110501
  2. WEIGHT LOSS SUPPLEMENT [Concomitant]

REACTIONS (5)
  - AMENORRHOEA [None]
  - OVARIAN CYST [None]
  - DIZZINESS [None]
  - VAGINAL HAEMORRHAGE [None]
  - ABDOMINAL PAIN [None]
